FAERS Safety Report 9114904 (Version 2)
Quarter: 2013Q2

REPORT INFORMATION
  Report Type: Spontaneous
  Country: IT (occurrence: IT)
  Receive Date: 20130208
  Receipt Date: 20130402
  Transmission Date: 20140414
  Serious: Yes (Hospitalization)
  Sender: FDA-Public Use
  Company Number: IT-ABBOTT-13P-083-1044842-00

PATIENT
  Age: 85 Year
  Sex: Female

DRUGS (2)
  1. KLACID [Suspect]
     Indication: INFECTION
     Route: 048
     Dates: start: 20121029, end: 20121103
  2. FIDATO [Suspect]
     Indication: INFECTION
     Dosage: FORM STRENGTH: 1 G/3.5 ML
     Route: 030
     Dates: start: 20121029, end: 20121103

REACTIONS (5)
  - Enterocolitis haemorrhagic [Recovered/Resolved]
  - Nephrotic syndrome [Recovered/Resolved]
  - Petechiae [Recovered/Resolved]
  - Vasculitis [Recovered/Resolved]
  - Nephritis [Unknown]
